FAERS Safety Report 8058483-4 (Version None)
Quarter: 2012Q1

REPORT INFORMATION
  Report Type: 
  Country: None (occurrence: None)
  Receive Date: 20120120
  Receipt Date: 20120113
  Transmission Date: 20120608
  Serious: Yes (Other)
  Sender: FDA-Public Use
  Company Number: FR-PFIZER INC-2012010516

PATIENT
  Age: 55 Year
  Sex: Female

DRUGS (1)
  1. LYRICA [Suspect]
     Dosage: FLUCTUATING FROM 100 TO 400 MG DAILY
     Dates: start: 20090101, end: 20111201

REACTIONS (1)
  - BRADYCARDIA [None]
